FAERS Safety Report 9170936 (Version 1)
Quarter: 2013Q1

REPORT INFORMATION
  Report Type: Spontaneous
  Country: GB (occurrence: None)
  Receive Date: 20130312
  Receipt Date: 20130312
  Transmission Date: 20140127
  Serious: No
  Sender: FDA-Public Use
  Company Number: GB-011070

PATIENT
  Age: 73 Year
  Sex: Male
  Weight: 82.2 kg

DRUGS (13)
  1. DEGARELIX [Suspect]
     Indication: PROSTATE CANCER
     Dates: start: 20120323
  2. METFORMIN [Concomitant]
  3. AMLODIPINE [Concomitant]
  4. ENALAPRIL [Concomitant]
  5. TAMSULOSIN [Concomitant]
  6. LANSOPRAZOLE [Concomitant]
  7. FERROUS SULPHATE [Concomitant]
  8. TRAMADOL [Concomitant]
  9. ARTHROTEC [Concomitant]
  10. TRIMETHOPRIM [Concomitant]
  11. TRIMETHOPRIM [Concomitant]
  12. FLU [Concomitant]
  13. NITROFURANTOIN [Concomitant]

REACTIONS (3)
  - Mobility decreased [None]
  - Arthralgia [None]
  - Prostate cancer [None]
